FAERS Safety Report 5584513-5 (Version None)
Quarter: 2008Q1

REPORT INFORMATION
  Report Type: 
  Country: None (occurrence: None)
  Receive Date: 20080108
  Receipt Date: 20071226
  Transmission Date: 20080703
  Serious: Yes (Hospitalization)
  Sender: FDA-Public Use
  Company Number: IN-ELI_LILLY_AND_COMPANY-IN200712005090

PATIENT
  Age: 80 Year
  Sex: Female
  Weight: 79 kg

DRUGS (3)
  1. BYETTA [Suspect]
     Dosage: 5 UG, 2/D
     Route: 058
     Dates: start: 20071212, end: 20071201
  2. HUMAN MIXTARD 30 [Concomitant]
     Dosage: 30 UNITS BEFORE BREAKFAST
     Route: 058
  3. HUMAN MIXTARD 30 [Concomitant]
     Dosage: 20 UNITS BEFORE DINNER
     Route: 058

REACTIONS (1)
  - MYOCARDIAL INFARCTION [None]
